FAERS Safety Report 7079678-2 (Version None)
Quarter: 2010Q4

REPORT INFORMATION
  Report Type: 
  Country: None (occurrence: None)
  Receive Date: 20101102
  Receipt Date: 20101022
  Transmission Date: 20110411
  Serious: Yes (Other)
  Sender: FDA-Public Use
  Company Number: PHHY2009CA17606

PATIENT
  Sex: Male

DRUGS (4)
  1. EXJADE [Suspect]
     Indication: MYELODYSPLASTIC SYNDROME
     Dosage: 2500 MG
     Route: 048
     Dates: start: 20090113
  2. EXJADE [Suspect]
     Indication: IRON OVERLOAD
     Dosage: 200 MG
     Route: 048
     Dates: start: 20090201, end: 20090501
  3. EXJADE [Suspect]
     Dosage: 1000 MG, QD
     Route: 048
     Dates: end: 20091022
  4. EXJADE [Suspect]
     Dosage: 2000 MG, QD

REACTIONS (8)
  - ABNORMAL SENSATION IN EYE [None]
  - ASTHENIA [None]
  - BONE PAIN [None]
  - DIZZINESS [None]
  - HEAD DISCOMFORT [None]
  - MALAISE [None]
  - MYALGIA [None]
  - VISUAL IMPAIRMENT [None]
